FAERS Safety Report 8999056 (Version 2)
Quarter: 2013Q3

REPORT INFORMATION
  Report Type: Spontaneous
  Country: US (occurrence: US)
  Receive Date: 20130103
  Receipt Date: 20130826
  Transmission Date: 20140515
  Serious: Yes (Hospitalization)
  Sender: FDA-Public Use
  Company Number: US-BAYER-2012-136341

PATIENT
  Age: 34 Year
  Sex: Female

DRUGS (1)
  1. YASMIN [Suspect]
     Route: 048

REACTIONS (2)
  - Cerebral infarction [None]
  - Cerebrovascular accident [None]
